FAERS Safety Report 7743577-0 (Version None)
Quarter: 2011Q3

REPORT INFORMATION
  Report Type: 
  Country: None (occurrence: None)
  Receive Date: 20110912
  Receipt Date: 20110908
  Transmission Date: 20111222
  Serious: Yes (Death)
  Sender: FDA-Public Use
  Company Number: CA-ABBOTT-11P-028-0851064-00

PATIENT
  Sex: Male

DRUGS (1)
  1. LUPRON DEPOT [Suspect]
     Indication: PROSTATE CANCER
     Dates: start: 20020926

REACTIONS (4)
  - DEATH [None]
  - MEMORY IMPAIRMENT [None]
  - FATIGUE [None]
  - NOCTURNAL DYSPNOEA [None]
